FAERS Safety Report 25901416 (Version 2)
Quarter: 2025Q4

REPORT INFORMATION
  Report Type: Spontaneous
  Country: CA (occurrence: CA)
  Receive Date: 20251009
  Receipt Date: 20251201
  Transmission Date: 20260117
  Serious: Yes (Hospitalization)
  Sender: PFIZER
  Company Number: CA-PFIZER INC-202500179904

PATIENT
  Age: 60 Year
  Sex: Female

DRUGS (2)
  1. ABRILADA [Suspect]
     Active Substance: ADALIMUMAB-AFZB
     Indication: Crohn^s disease
     Dosage: 40 MG, WEEK 0 160 MG , WEEK 2-80 MG (EVERY 2 WEEKS)
     Route: 058
     Dates: start: 20240227
  2. ABRILADA [Suspect]
     Active Substance: ADALIMUMAB-AFZB
     Dosage: 40 MG, WEEK 0 160 MG , WEEK 2-80 MG (EVERY 2 WEEKS)
     Route: 058
     Dates: start: 2025

REACTIONS (1)
  - Stoma site infection [Recovering/Resolving]

NARRATIVE: CASE EVENT DATE: 20250101
